FAERS Safety Report 4710319-2 (Version None)
Quarter: 2005Q3

REPORT INFORMATION
  Report Type: 
  Country: None (occurrence: None)
  Receive Date: 20050707
  Receipt Date: 20050621
  Transmission Date: 20060218
  Serious: Yes (Hospitalization, Other)
  Sender: FDA-Public Use
  Company Number: 2005BI011895

PATIENT
  Age: 61 Year
  Sex: Female

DRUGS (1)
  1. AMEVIVE [Suspect]
     Indication: PSORIASIS
     Dosage: 15 MG; QW; IM
     Route: 030
     Dates: start: 20041012, end: 20050201

REACTIONS (7)
  - ARTERIOSCLEROSIS [None]
  - CONDITION AGGRAVATED [None]
  - MENTAL IMPAIRMENT [None]
  - PROCEDURAL COMPLICATION [None]
  - PSORIASIS [None]
  - PYREXIA [None]
  - TRANSIENT ISCHAEMIC ATTACK [None]
